FAERS Safety Report 5422989-4 (Version None)
Quarter: 2007Q3

REPORT INFORMATION
  Report Type: 
  Country: None (occurrence: None)
  Receive Date: 20070822
  Receipt Date: 20070820
  Transmission Date: 20080115
  Serious: Yes (Hospitalization, Disabling)
  Sender: FDA-Public Use
  Company Number: US-MERCK-0601USA01862

PATIENT
  Age: 76 Year
  Sex: Female

DRUGS (12)
  1. FOSAMAX [Suspect]
     Indication: OSTEOPOROSIS
     Route: 048
     Dates: start: 20050217, end: 20051201
  2. FOSAMAX [Suspect]
     Route: 048
     Dates: start: 20030101
  3. TIMOLOL [Concomitant]
     Route: 047
  4. PREMARIN [Concomitant]
     Route: 065
  5. ACIPHEX [Concomitant]
     Route: 065
  6. MAXZIDE [Concomitant]
     Route: 065
  7. ATENOLOL [Concomitant]
     Route: 065
  8. ZOLOFT [Concomitant]
     Route: 065
  9. LEVOXYL [Concomitant]
     Route: 065
  10. FERROUS SULFATE [Concomitant]
     Route: 065
  11. METHOCARBAMOL [Concomitant]
     Route: 065
  12. AMBIEN [Concomitant]
     Route: 065

REACTIONS (3)
  - CEREBROVASCULAR ACCIDENT [None]
  - OSTEOMYELITIS [None]
  - OSTEONECROSIS [None]
